FAERS Safety Report 23043929 (Version 3)
Quarter: 2023Q4

REPORT INFORMATION
  Report Type: Report from Study
  Country: CH (occurrence: CH)
  Receive Date: 20231009
  Receipt Date: 20231021
  Transmission Date: 20240109
  Serious: Yes (Hospitalization)
  Sender: FDA-Public Use
  Company Number: CH-ABBVIE-5413598

PATIENT
  Sex: Male

DRUGS (8)
  1. CARBIDOPA\LEVODOPA [Suspect]
     Active Substance: CARBIDOPA\LEVODOPA
     Indication: Parkinson^s disease
     Dosage: MD: 2.7 ML, CRD: 1.1ML/H, ED: 0.5 ML, FREQUENCY TEXT: 16H THERAPY
     Route: 050
     Dates: start: 20230828, end: 20230830
  2. CARBIDOPA\LEVODOPA [Suspect]
     Active Substance: CARBIDOPA\LEVODOPA
     Dosage: MD: 5.7 ML, CRD: 1.2 ML/H, ED: 0.5 ML, FREQUENCY TEXT: 16H THERAPY
     Route: 050
     Dates: start: 20230913, end: 20230928
  3. CARBIDOPA\LEVODOPA [Suspect]
     Active Substance: CARBIDOPA\LEVODOPA
     Dosage: MD: 2.6 ML, CRD: 1.0ML/H, ED: 0.5 ML, FREQUENCY TEXT: 16H THERAPY
     Route: 050
     Dates: start: 20230824, end: 20230828
  4. CARBIDOPA\LEVODOPA [Suspect]
     Active Substance: CARBIDOPA\LEVODOPA
     Dosage: MD: 2.6 ML, CRD: 1.1ML/H, ED: 0.5 ML, FREQUENCY TEXT: 16H THERAPY
     Route: 050
     Dates: start: 20230830, end: 20230913
  5. CARBIDOPA\LEVODOPA [Suspect]
     Active Substance: CARBIDOPA\LEVODOPA
     Dosage: MD: 2.5 ML, CRD: 0.8ML/H, ED: 0.5 ML, FREQUENCY TEXT: 16H THERAPY
     Route: 050
     Dates: start: 20230822, end: 20230824
  6. CARBIDOPA\LEVODOPA [Suspect]
     Active Substance: CARBIDOPA\LEVODOPA
     Dosage: MD: 5.7 ML, CRD: 1.4 ML/H, ED: 0.5 ML
     Route: 050
     Dates: start: 20230928, end: 20231002
  7. CARBIDOPA\LEVODOPA [Suspect]
     Active Substance: CARBIDOPA\LEVODOPA
     Dosage: MD: 5.7 ML, CRD: 1.4 ML/H, ED: 0.5 ML
     Route: 050
     Dates: start: 20231002, end: 20231017
  8. CARBIDOPA\LEVODOPA [Suspect]
     Active Substance: CARBIDOPA\LEVODOPA
     Dosage: MD: 5.7 ML, CRD: 1.6 ML/H, ED: 1.2 ML
     Route: 050
     Dates: start: 20231017

REACTIONS (13)
  - Rehabilitation therapy [Not Recovered/Not Resolved]
  - Psychotic disorder [Not Recovered/Not Resolved]
  - Bradykinesia [Not Recovered/Not Resolved]
  - Parkinsonian gait [Not Recovered/Not Resolved]
  - Walking aid user [Not Recovered/Not Resolved]
  - Freezing phenomenon [Not Recovered/Not Resolved]
  - Decreased gait velocity [Not Recovered/Not Resolved]
  - Bradykinesia [Not Recovered/Not Resolved]
  - Feeling abnormal [Recovered/Resolved]
  - Product administration error [Not Recovered/Not Resolved]
  - Mobility decreased [Recovered/Resolved]
  - Pallor [Recovered/Resolved]
  - Hypotension [Recovered/Resolved]

NARRATIVE: CASE EVENT DATE: 20230101
